FAERS Safety Report 24179093 (Version 2)
Quarter: 2024Q4

REPORT INFORMATION
  Report Type: Report from Study
  Country: CZ (occurrence: CZ)
  Receive Date: 20240806
  Receipt Date: 20241220
  Transmission Date: 20250114
  Serious: Yes (Other)
  Sender: ACCORD
  Company Number: CZ-Accord-439185

PATIENT
  Age: 65 Year

DRUGS (2)
  1. AZACITIDINE [Suspect]
     Active Substance: AZACITIDINE
     Indication: Acute myeloid leukaemia
  2. VENETOCLAX [Suspect]
     Active Substance: VENETOCLAX
     Indication: Acute myeloid leukaemia

REACTIONS (6)
  - Systemic candida [Unknown]
  - Conjunctivitis [Unknown]
  - Sinusitis [Unknown]
  - Periorbital cellulitis [Unknown]
  - Septic embolus [Unknown]
  - Bronchiolitis [Unknown]
